FAERS Safety Report 20142399 (Version 3)
Quarter: 2022Q2

REPORT INFORMATION
  Report Type: Spontaneous
  Country: US (occurrence: US)
  Receive Date: 20211202
  Receipt Date: 20220623
  Transmission Date: 20220721
  Serious: Yes (Hospitalization, Other)
  Sender: FDA-Public Use
  Company Number: US-TEVA-2021-US-1982296

PATIENT
  Age: 62 Year
  Sex: Male

DRUGS (11)
  1. DOXYCYCLINE [Suspect]
     Active Substance: DOXYCYCLINE
     Indication: Arthritis infective
     Route: 065
     Dates: start: 2019, end: 2019
  2. VANCOMYCIN [Suspect]
     Active Substance: VANCOMYCIN
     Indication: Arthritis infective
     Route: 065
     Dates: start: 2008
  3. PENICILLIN V POTASSIUM [Suspect]
     Active Substance: PENICILLIN V POTASSIUM
     Indication: Arthritis infective
     Route: 048
     Dates: start: 2019
  4. MINOCYCLINE [Suspect]
     Active Substance: MINOCYCLINE HYDROCHLORIDE
     Indication: Arthritis infective
     Route: 048
     Dates: start: 2019
  5. RIFAMPIN [Suspect]
     Active Substance: RIFAMPIN
     Indication: Arthritis infective
     Route: 065
     Dates: start: 2009
  6. PENICILLIN G [Suspect]
     Active Substance: PENICILLIN G
     Indication: Arthritis infective
     Route: 065
     Dates: start: 2019, end: 2019
  7. DAPTOMYCIN [Suspect]
     Active Substance: DAPTOMYCIN
     Indication: Arthritis infective
     Route: 065
     Dates: start: 2009
  8. DAPTOMYCIN [Suspect]
     Active Substance: DAPTOMYCIN
     Indication: Arthritis infective
     Route: 065
     Dates: start: 2019, end: 2019
  9. MEROPENEM [Suspect]
     Active Substance: MEROPENEM
     Indication: Arthritis infective
     Route: 065
     Dates: start: 2019, end: 2019
  10. CEFTRIAXONE [Suspect]
     Active Substance: CEFTRIAXONE
     Indication: Arthritis infective
     Route: 065
     Dates: start: 2013
  11. CEFADROXIL [Concomitant]
     Active Substance: CEFADROXIL
     Indication: Arthritis infective
     Route: 048
     Dates: start: 201505

REACTIONS (6)
  - Stevens-Johnson syndrome [Unknown]
  - Suicidal ideation [Unknown]
  - Pruritus [Unknown]
  - Eosinophilia [Unknown]
  - Drug ineffective [Unknown]
  - Rash [Unknown]

NARRATIVE: CASE EVENT DATE: 20080101
